FAERS Safety Report 4459331-1 (Version None)
Quarter: 2004Q3

REPORT INFORMATION
  Report Type: 
  Country: None (occurrence: None)
  Receive Date: 20040927
  Receipt Date: 20040903
  Transmission Date: 20050211
  Serious: Yes (Life-Threatening, Hospitalization)
  Sender: FDA-Public Use
  Company Number: PL-MERCK-0409POL00001

PATIENT
  Age: 18 Year
  Sex: Female
  Weight: 80 kg

DRUGS (1)
  1. COSMEGEN [Suspect]
     Indication: HODGKIN'S DISEASE
     Route: 041
     Dates: start: 20040903, end: 20040903

REACTIONS (10)
  - ACCIDENTAL OVERDOSE [None]
  - BONE MARROW DEPRESSION [None]
  - DERMATITIS EXFOLIATIVE [None]
  - DESQUAMATION MOUTH [None]
  - GASTROINTESTINAL MUCOSAL DISORDER [None]
  - GASTROINTESTINAL MUCOSAL NECROSIS [None]
  - LEUKOPENIA [None]
  - LUNG DISORDER [None]
  - RESPIRATORY FAILURE [None]
  - THROMBOCYTOPENIA [None]
